FAERS Safety Report 19701528 (Version 2)
Quarter: 2021Q3

REPORT INFORMATION
  Report Type: Report from Study
  Country: CN (occurrence: CN)
  Receive Date: 20210813
  Receipt Date: 20210827
  Transmission Date: 20211014
  Serious: Yes (Other)
  Sender: FDA-Public Use
  Company Number: CN-BRISTOL-MYERS SQUIBB COMPANY-BMS-2021-080600

PATIENT
  Age: 58 Year
  Sex: Male

DRUGS (1)
  1. NIVOLUMAB [Suspect]
     Active Substance: NIVOLUMAB
     Indication: NON-SMALL CELL LUNG CANCER
     Dosage: 220 MILLIGRAM, Q3WK
     Route: 041
     Dates: start: 20210521

REACTIONS (4)
  - Off label use [Unknown]
  - Loss of consciousness [Unknown]
  - General physical health deterioration [Unknown]
  - Syncope [Unknown]
